FAERS Safety Report 17463849 (Version 1)
Quarter: 2020Q1

REPORT INFORMATION
  Report Type: Spontaneous
  Country: US (occurrence: US)
  Receive Date: 20200226
  Receipt Date: 20200226
  Transmission Date: 20200409
  Serious: Yes (Hospitalization)
  Sender: FDA-Public Use
  Company Number: US-ASTRAZENECA-2020SE04982

PATIENT
  Age: 45 Year
  Sex: Female

DRUGS (29)
  1. PEPCID [Concomitant]
     Active Substance: FAMOTIDINE
     Dosage: 40.0MG UNKNOWN
     Route: 042
  2. FASENRA [Suspect]
     Active Substance: BENRALIZUMAB
     Indication: ASTHMA
     Dosage: FOR 3 DOSES
     Route: 058
     Dates: start: 201812
  3. EPINEPHRINE. [Concomitant]
     Active Substance: EPINEPHRINE
     Dosage: 0.3MG UNKNOWN
     Route: 030
  4. CITRACAL + D 315 [Concomitant]
     Route: 048
  5. MAGNESIUM [Concomitant]
     Active Substance: MAGNESIUM
     Route: 048
  6. PREDNISONE. [Concomitant]
     Active Substance: PREDNISONE
     Dosage: BURST AT 6O MG QD
     Route: 065
  7. OMEPRAZOLE. [Concomitant]
     Active Substance: OMEPRAZOLE
     Route: 048
  8. SPIRONOLACTONE. [Concomitant]
     Active Substance: SPIRONOLACTONE
     Route: 048
  9. MAGNESIUM SULPHATE [Concomitant]
     Active Substance: MAGNESIUM SULFATE
     Dosage: 2.0G UNKNOWN
     Route: 042
  10. FASENRA [Suspect]
     Active Substance: BENRALIZUMAB
     Indication: ASTHMA
     Route: 058
  11. XOLAIR [Concomitant]
     Active Substance: OMALIZUMAB
     Dates: start: 2018
  12. SPIRIVA RESPIMAT [Concomitant]
     Active Substance: TIOTROPIUM BROMIDE
     Dosage: 2.5 MCG/ACT 2 PUFFS INHALATION ONCE A DAY
     Route: 055
  13. FLONASE [Concomitant]
     Active Substance: FLUTICASONE PROPIONATE
     Dosage: MCG/DOSE INHALER 1SPRAY IN EACH NOSTRIL NASALLY ONCE A DAY
     Route: 055
  14. CETIRIZINE [Concomitant]
     Active Substance: CETIRIZINE HYDROCHLORIDE
     Route: 048
  15. TRIAMCINOLONE ACETONIDE. [Concomitant]
     Active Substance: TRIAMCINOLONE ACETONIDE
     Dosage: 0.1% CREAM 1 APPLICATION TO AFFECTED AREA EXTERNALLY TWICE A DAY
     Route: 065
  16. PREDNISONE. [Concomitant]
     Active Substance: PREDNISONE
     Dosage: 60.0MG UNKNOWN
     Dates: start: 20200101
  17. XOLAIR [Concomitant]
     Active Substance: OMALIZUMAB
     Route: 065
     Dates: start: 20180703
  18. ALBUTEROL SULFATE. [Concomitant]
     Active Substance: ALBUTEROL SULFATE
     Dosage: (2.5 MG/3ML) 0.083% NEBULIZATION SOLUTION 3 ML AS NEEDED INHALATION EVERY 6 HRS
     Route: 055
  19. SPIRONOLACTONE. [Concomitant]
     Active Substance: SPIRONOLACTONE
     Route: 048
     Dates: start: 20191223
  20. ZYRTEC [Concomitant]
     Active Substance: CETIRIZINE HYDROCHLORIDE
     Dosage: TWICE DAILY
  21. PREDNISONE. [Concomitant]
     Active Substance: PREDNISONE
     Dosage: TAPERING 4 DAYS AT EACH DOSE40.0MG UNKNOWN
  22. VITAMIN D [Concomitant]
     Active Substance: VITAMIN D NOS
     Dosage: 1000 UNITS ONCE A DAY
     Route: 048
  23. LOSARTAN POTASSIUM. [Concomitant]
     Active Substance: LOSARTAN POTASSIUM
     Route: 048
  24. SINGULAIR [Concomitant]
     Active Substance: MONTELUKAST SODIUM
     Route: 048
  25. ASPIRIN. [Concomitant]
     Active Substance: ASPIRIN
     Route: 048
  26. SOLU-MEDROL [Concomitant]
     Active Substance: METHYLPREDNISOLONE SODIUM SUCCINATE
     Dosage: 125.0MG UNKNOWN
     Route: 042
  27. DULERA [Concomitant]
     Active Substance: FORMOTEROL FUMARATE DIHYDRATE\MOMETASONE FUROATE
     Dosage: 200-5 MCG/ACT AEROSOL 2 PUFFS INHALATION TWICE A DAY
     Route: 055
  28. SALINE [Concomitant]
     Active Substance: SODIUM CHLORIDE
     Dosage: 100 ML AN HOUR
     Route: 065
  29. BENADRYL [Concomitant]
     Active Substance: DIPHENHYDRAMINE HYDROCHLORIDE
     Dosage: 50.0MG UNKNOWN
     Route: 042

REACTIONS (22)
  - Heart rate increased [Unknown]
  - Flushing [Unknown]
  - Fatigue [Unknown]
  - Pain [Unknown]
  - Asthenia [Unknown]
  - Respiratory rate increased [Unknown]
  - Dyspnoea [Unknown]
  - Wheezing [Unknown]
  - Paraesthesia [Unknown]
  - Anxiety [Unknown]
  - Loss of consciousness [Unknown]
  - Chest pain [Unknown]
  - Anaphylactic reaction [Unknown]
  - Bronchospasm [Unknown]
  - Hypertension [Unknown]
  - Type 2 diabetes mellitus [Unknown]
  - Swelling [Unknown]
  - Drug hypersensitivity [Recovering/Resolving]
  - Cellulitis [Unknown]
  - Loss of personal independence in daily activities [Unknown]
  - Cough [Unknown]
  - Chest discomfort [Unknown]

NARRATIVE: CASE EVENT DATE: 20191230
